FAERS Safety Report 5240475-1 (Version None)
Quarter: 2007Q1

REPORT INFORMATION
  Report Type: 
  Country: None (occurrence: None)
  Receive Date: 20070219
  Receipt Date: 20070216
  Transmission Date: 20070707
  Serious: Yes (Disabling, Other)
  Sender: FDA-Public Use
  Company Number: US-GLAXOSMITHKLINE-A0637962A

PATIENT
  Age: 44 Year
  Sex: Female
  Weight: 78.6 kg

DRUGS (2)
  1. IMITREX [Suspect]
     Indication: MIGRAINE
     Dosage: 6MG AS REQUIRED
     Route: 058
  2. UNKNOWN [Concomitant]

REACTIONS (4)
  - HEADACHE [None]
  - INJECTION SITE PAIN [None]
  - INJECTION SITE SWELLING [None]
  - NAUSEA [None]
